FAERS Safety Report 17982100 (Version 1)
Quarter: 2020Q3

REPORT INFORMATION
  Report Type: Spontaneous
  Country: PR (occurrence: US)
  Receive Date: 20200706
  Receipt Date: 20200706
  Transmission Date: 20201103
  Serious: No
  Sender: FDA-Public Use
  Company Number: PR-009507513-2006USA008675

PATIENT
  Sex: Female

DRUGS (5)
  1. METFORMIN [Suspect]
     Active Substance: METFORMIN HYDROCHLORIDE
     Indication: DIABETES MELLITUS
     Dosage: 500 MILLIGRAMS/DAILY (TOOK ONLY ONE DOSE OF METFORMIN)
     Route: 048
  2. JANUVIA [Suspect]
     Active Substance: SITAGLIPTIN PHOSPHATE
     Indication: DIABETES MELLITUS
     Dosage: 100 MILLIGRAMS/DAILY
     Route: 048
  3. GLUCOTROL [Concomitant]
     Active Substance: GLIPIZIDE
  4. ATENOLOL. [Concomitant]
     Active Substance: ATENOLOL
  5. FOLIC ACID. [Concomitant]
     Active Substance: FOLIC ACID

REACTIONS (1)
  - Gastrointestinal disorder [Recovering/Resolving]
